FAERS Safety Report 8563836-1 (Version None)
Quarter: 2012Q3

REPORT INFORMATION
  Report Type: 
  Country: None (occurrence: None)
  Receive Date: 20120727
  Receipt Date: 20120727
  Transmission Date: 20120928
  Serious: Yes (Hospitalization)
  Sender: FDA-Public Use
  Company Number: None

PATIENT
  Age: 40 Year
  Sex: Male
  Weight: 87.7 kg

DRUGS (5)
  1. ADVIL [Concomitant]
  2. ATRIPLA [Concomitant]
  3. IBUPROFEN [Concomitant]
  4. SEPTRA [Suspect]
     Indication: ABSCESS
     Dosage: PO RECENT
     Route: 048
  5. ALLEGRA [Concomitant]

REACTIONS (4)
  - NAUSEA [None]
  - DRUG HYPERSENSITIVITY [None]
  - RENAL FAILURE ACUTE [None]
  - VOMITING [None]
